FAERS Safety Report 4585507-9 (Version None)
Quarter: 2005Q1

REPORT INFORMATION
  Report Type: 
  Country: None (occurrence: None)
  Receive Date: 20050214
  Receipt Date: 20040913
  Transmission Date: 20050727
  Serious: Yes (Hospitalization)
  Sender: FDA-Public Use
  Company Number: 05-057

PATIENT
  Age: 78 Year
  Sex: Male

DRUGS (6)
  1. DEXAMETHASONE [Suspect]
     Indication: MYELOMA RECURRENCE
     Dosage: 40 MG/DAY, ORAL
     Route: 048
     Dates: start: 20030410, end: 20030427
  2. TRIMETHOPRIM-SULFAMETHOXAZOLE [Concomitant]
  3. PAMIDRONATE DISODIUM [Concomitant]
  4. DARBEPOETIN [Concomitant]
  5. LISINOPRIL [Concomitant]
  6. MULTI-VITAMIN [Concomitant]

REACTIONS (6)
  - CATHETER SEPSIS [None]
  - HYPOCALCAEMIA [None]
  - HYPOMAGNESAEMIA [None]
  - HYPONATRAEMIA [None]
  - NEUTROPENIA [None]
  - UROSEPSIS [None]
